FAERS Safety Report 24223183 (Version 1)
Quarter: 2024Q3

REPORT INFORMATION
  Report Type: Spontaneous
  Country: US (occurrence: None)
  Receive Date: 20240816
  Receipt Date: 20240816
  Transmission Date: 20241017
  Serious: No
  Sender: Public
  Company Number: None

PATIENT
  Age: 24 Year
  Sex: Male
  Weight: 105.75 kg

DRUGS (19)
  1. VENLAFAXINE [Suspect]
     Active Substance: VENLAFAXINE HYDROCHLORIDE
     Indication: Generalised anxiety disorder
     Dosage: 2 CAPSULES DAILY ORAL
     Route: 048
     Dates: start: 20240514
  2. VENLAFAXINE [Suspect]
     Active Substance: VENLAFAXINE HYDROCHLORIDE
     Indication: Post-traumatic stress disorder
  3. VENLAFAXINE [Suspect]
     Active Substance: VENLAFAXINE HYDROCHLORIDE
     Indication: Generalised anxiety disorder
     Dosage: 1 CAPSULE DALY ORAL
     Route: 048
  4. VENLAFAXINE [Suspect]
     Active Substance: VENLAFAXINE HYDROCHLORIDE
     Indication: Post-traumatic stress disorder
  5. VENLAFAXINE [Concomitant]
     Active Substance: VENLAFAXINE HYDROCHLORIDE
  6. BUSPIRION [Concomitant]
  7. TYLENOL [Concomitant]
     Active Substance: ACETAMINOPHEN
  8. IBUPROFEN [Concomitant]
     Active Substance: IBUPROFEN
  9. COENZYME Q10 [Concomitant]
     Active Substance: DIETARY SUPPLEMENT\UBIDECARENONE
  10. FISH OIL [Concomitant]
     Active Substance: FISH OIL
  11. MEN^S MULTIVATAMIN [Concomitant]
  12. HERBALS [Concomitant]
     Active Substance: HERBALS
  13. PROTEIN [Concomitant]
     Active Substance: PROTEIN
  14. PREWORKOUT [Concomitant]
  15. CREATINE [Concomitant]
     Active Substance: CREATINE
  16. HERBALS\TURMERIC [Concomitant]
     Active Substance: HERBALS\TURMERIC
  17. MAGNESIUM [Concomitant]
     Active Substance: MAGNESIUM
  18. MAGNESIUM [Concomitant]
     Active Substance: MAGNESIUM
  19. SELENIUM [Concomitant]
     Active Substance: SELENIUM

REACTIONS (7)
  - Tinnitus [None]
  - Product dose omission in error [None]
  - Dizziness [None]
  - Fatigue [None]
  - Hunger [None]
  - Tinnitus [None]
  - Drug withdrawal syndrome [None]

NARRATIVE: CASE EVENT DATE: 20240815
